FAERS Safety Report 11133217 (Version 1)
Quarter: 2015Q2

REPORT INFORMATION
  Report Type: Report from Study
  Country: US (occurrence: US)
  Receive Date: 20150522
  Receipt Date: 20150522
  Transmission Date: 20150821
  Serious: Yes (Other)
  Sender: FDA-Public Use
  Company Number: US-CELGENEUS-USA-2015052889

PATIENT
  Age: 87 Year
  Sex: Female
  Weight: 68.95 kg

DRUGS (2)
  1. DEXAMETHASONE. [Concomitant]
     Active Substance: DEXAMETHASONE
     Indication: PLASMA CELL MYELOMA
     Route: 065
  2. THALOMID [Suspect]
     Active Substance: THALIDOMIDE
     Indication: PLASMA CELL MYELOMA
     Dosage: 50 MILLIGRAM
     Route: 048

REACTIONS (9)
  - Decreased appetite [Unknown]
  - Chest pain [Unknown]
  - Chills [Unknown]
  - Hyperglycaemia [Unknown]
  - Hyperhidrosis [Unknown]
  - No therapeutic response [Unknown]
  - Epistaxis [Unknown]
  - Bone pain [Unknown]
  - Dry skin [Unknown]

NARRATIVE: CASE EVENT DATE: 20120614
